FAERS Safety Report 12175043 (Version 2)
Quarter: 2016Q1

REPORT INFORMATION
  Report Type: Spontaneous
  Country: FR (occurrence: FR)
  Receive Date: 20160314
  Receipt Date: 20160321
  Transmission Date: 20160526
  Serious: Yes (Disabling)
  Sender: FDA-Public Use
  Company Number: FR-PFIZER INC-2016137709

PATIENT
  Age: 61 Year
  Sex: Male

DRUGS (7)
  1. ZAVEDOS [Suspect]
     Active Substance: IDARUBICIN
     Dosage: 12 MG/M2, CYCLIC
     Route: 042
     Dates: start: 20160203, end: 20160205
  2. CYTARABINE FRESENIUS KABI [Suspect]
     Active Substance: CYTARABINE
     Indication: ACUTE MYELOID LEUKAEMIA
     Dosage: 200 MG/M2, CYCLIC FROM D1 TO D7
     Route: 042
     Dates: start: 20140811
  3. CYTARABINE FRESENIUS KABI [Suspect]
     Active Substance: CYTARABINE
     Dosage: 2000 MG/M2, CYCLIC
     Route: 042
     Dates: start: 20160203, end: 20160205
  4. ZAVEDOS [Suspect]
     Active Substance: IDARUBICIN
     Indication: ACUTE MYELOID LEUKAEMIA
     Dosage: 12 MG/M2, CYCLIC FROM D1 TO D3
     Route: 042
     Dates: start: 20140811
  5. CYTARABINE FRESENIUS KABI [Suspect]
     Active Substance: CYTARABINE
     Dosage: 1500 MG/M2, EVERY 12 HOURS (CONSOLIDATION 1)
     Route: 042
     Dates: start: 20141003, end: 20141007
  6. CYTARABINE FRESENIUS KABI [Suspect]
     Active Substance: CYTARABINE
     Dosage: 1500 MG/M2, EVERY 12 HOURS (CONSOLIDATION 2)
     Route: 042
     Dates: start: 20141105, end: 20141110
  7. POSACONAZOLE [Concomitant]
     Active Substance: POSACONAZOLE
     Dosage: UNK

REACTIONS (1)
  - Axonal neuropathy [Not Recovered/Not Resolved]

NARRATIVE: CASE EVENT DATE: 201409
